FAERS Safety Report 4367515-6 (Version None)
Quarter: 2004Q2

REPORT INFORMATION
  Report Type: 
  Country: None (occurrence: None)
  Receive Date: 20040601
  Receipt Date: 20030924
  Transmission Date: 20050107
  Serious: Yes (Other)
  Sender: FDA-Public Use
  Company Number: BE-ROCHE-347586

PATIENT
  Age: 29 Year
  Sex: Male
  Weight: 78.5 kg

DRUGS (7)
  1. MYCOPHENOLATE MOFETIL [Suspect]
     Route: 065
  2. EPREX [Suspect]
     Indication: ANAEMIA
     Route: 065
  3. EPREX [Suspect]
     Route: 065
  4. CYCLOSPORINE [Concomitant]
     Dosage: DOSAGE SUBSEQUENTLY ALTERED ACCORDING TO SERUM LEVELS BETWEEN 200 AND 250 NG/ML.
  5. METHYLPREDNISOLONE [Concomitant]
  6. ATG [Concomitant]
  7. IRON SUPPLEMENT [Concomitant]
     Indication: ANAEMIA

REACTIONS (7)
  - ANAEMIA [None]
  - APLASIA PURE RED CELL [None]
  - CARDIOVASCULAR DISORDER [None]
  - KIDNEY TRANSPLANT REJECTION [None]
  - OLIGURIA [None]
  - PYREXIA [None]
  - RETICULOCYTE COUNT INCREASED [None]
